FAERS Safety Report 8612997-4 (Version None)
Quarter: 2012Q3

REPORT INFORMATION
  Report Type: 
  Country: None (occurrence: None)
  Receive Date: 20120822
  Receipt Date: 20120816
  Transmission Date: 20120928
  Serious: Yes (Other)
  Sender: FDA-Public Use
  Company Number: BR-PFIZER INC-2012200965

PATIENT
  Age: 84 Year
  Sex: Male

DRUGS (1)
  1. LYRICA [Suspect]
     Indication: BACK PAIN
     Dosage: 150 MG, 2X/DAY
     Route: 048
     Dates: end: 20120815

REACTIONS (4)
  - TONGUE DISORDER [None]
  - ABASIA [None]
  - TREMOR [None]
  - LACK OF SPONTANEOUS SPEECH [None]
